FAERS Safety Report 24578592 (Version 3)
Quarter: 2024Q4

REPORT INFORMATION
  Report Type: Spontaneous
  Country: JP (occurrence: JP)
  Receive Date: 20241105
  Receipt Date: 20241211
  Transmission Date: 20250115
  Serious: Yes (Other)
  Sender: GLAXOSMITHKLINE
  Company Number: JP-GSKNCCC-Case-02102281_AE-89668

PATIENT

DRUGS (3)
  1. ATOVAQUONE [Suspect]
     Active Substance: ATOVAQUONE
     Indication: Prophylaxis
     Dosage: 2 DF, QD
     Route: 048
     Dates: end: 20241121
  2. PREDONINE [Concomitant]
     Active Substance: PREDNISOLONE
     Dosage: 1.75 MG, QD
     Route: 048
     Dates: end: 20241121
  3. PIPERACILLIN AND TAZOBACTAM [Concomitant]
     Active Substance: PIPERACILLIN SODIUM\TAZOBACTAM SODIUM
     Dosage: 6.75 MG, QD
     Route: 041
     Dates: start: 20241106

REACTIONS (3)
  - Interstitial lung disease [Not Recovered/Not Resolved]
  - Hyperthermia [Not Recovered/Not Resolved]
  - Dysphagia [Not Recovered/Not Resolved]

NARRATIVE: CASE EVENT DATE: 20241028
